FAERS Safety Report 17157541 (Version 1)
Quarter: 2019Q4

REPORT INFORMATION
  Report Type: Spontaneous
  Country: US (occurrence: US)
  Receive Date: 20191213
  Receipt Date: 20191213
  Transmission Date: 20200122
  Serious: No
  Sender: FDA-Public Use
  Company Number: None

PATIENT
  Age: 69 Year
  Sex: Male
  Weight: 69.75 kg

DRUGS (5)
  1. REPATHA [Suspect]
     Active Substance: EVOLOCUMAB
     Indication: CARDIOMETABOLIC SYNDROME
     Dosage: ?          QUANTITY:1 INJECTION(S);OTHER FREQUENCY:Q 2 WEEKS;?
     Route: 030
     Dates: start: 20190717
  2. CPAP MACHINE [Concomitant]
  3. CARDIAC PACEMAKER [Concomitant]
  4. METOPROLOL SUCCINATE. [Concomitant]
     Active Substance: METOPROLOL SUCCINATE
  5. REPATHA [Suspect]
     Active Substance: EVOLOCUMAB
     Indication: HYPERCHOLESTEROLAEMIA
     Dosage: ?          QUANTITY:1 INJECTION(S);OTHER FREQUENCY:Q 2 WEEKS;?
     Route: 030
     Dates: start: 20190717

REACTIONS (1)
  - White blood cell count abnormal [None]

NARRATIVE: CASE EVENT DATE: 20191212
